FAERS Safety Report 4375401-0 (Version None)
Quarter: 2004Q2

REPORT INFORMATION
  Report Type: 
  Country: None (occurrence: None)
  Receive Date: 20040607
  Receipt Date: 20040528
  Transmission Date: 20050107
  Serious: Yes (Death)
  Sender: FDA-Public Use
  Company Number: 2004209631US

PATIENT
  Age: 32 Year
  Sex: Male
  Weight: 102 kg

DRUGS (7)
  1. XANAX [Suspect]
  2. METHADONE (METHADONE) [Suspect]
  3. NORDAZEPAM (NORDAZEPAM) [Concomitant]
  4. DIAZEPAM [Concomitant]
  5. ATENOLOL [Concomitant]
  6. OMEPRAZOLE [Concomitant]
  7. ZOCOR [Concomitant]

REACTIONS (9)
  - ACCIDENT [None]
  - CARDIOMEGALY [None]
  - COMA [None]
  - DRUG TOXICITY [None]
  - HEPATOSPLENOMEGALY [None]
  - MULTIPLE DRUG OVERDOSE [None]
  - PULMONARY CONGESTION [None]
  - PULMONARY OEDEMA [None]
  - VENTRICULAR HYPERTROPHY [None]
